FAERS Safety Report 7058220-6 (Version None)
Quarter: 2010Q4

REPORT INFORMATION
  Report Type: 
  Country: None (occurrence: None)
  Receive Date: 20101022
  Receipt Date: 20101019
  Transmission Date: 20110411
  Serious: Yes (Death, Other)
  Sender: FDA-Public Use
  Company Number: KR-CELGENEUS-286-50794-10101737

PATIENT
  Age: 67 Year
  Sex: Female

DRUGS (1)
  1. VIDAZA [Suspect]
     Route: 058
     Dates: start: 20061004

REACTIONS (3)
  - NO THERAPEUTIC RESPONSE [None]
  - PANCREATIC CARCINOMA [None]
  - PANCYTOPENIA [None]
